FAERS Safety Report 18511621 (Version 1)
Quarter: 2020Q4

REPORT INFORMATION
  Report Type: Other
  Country: JP (occurrence: JP)
  Receive Date: 20201117
  Receipt Date: 20201117
  Transmission Date: 20210114
  Serious: Yes (Hospitalization, Other)
  Sender: FDA-Public Use
  Company Number: JP-XSPIRE PHARMA, LLC-2096000

PATIENT
  Age: 70 Year
  Sex: Male
  Weight: 63.64 kg

DRUGS (3)
  1. LENALIDOMIDE [Suspect]
     Active Substance: LENALIDOMIDE
  2. BORTEZOMIB. [Suspect]
     Active Substance: BORTEZOMIB
  3. DEXAMETHASONE. [Suspect]
     Active Substance: DEXAMETHASONE
     Indication: PLASMA CELL MYELOMA

REACTIONS (1)
  - Prinzmetal angina [Recovered/Resolved]
